FAERS Safety Report 24433179 (Version 1)
Quarter: 2024Q4

REPORT INFORMATION
  Report Type: Spontaneous
  Country: US (occurrence: US)
  Receive Date: 20241014
  Receipt Date: 20241014
  Transmission Date: 20250115
  Serious: No
  Sender: NOVARTIS
  Company Number: US-002147023-NVSC2024US200373

PATIENT
  Sex: Male
  Weight: 81 kg

DRUGS (1)
  1. SCEMBLIX [Suspect]
     Active Substance: ASCIMINIB HYDROCHLORIDE
     Indication: Acute lymphocytic leukaemia
     Dosage: 80 MG, QD
     Route: 048
     Dates: start: 202407

REACTIONS (2)
  - Fluid retention [Not Recovered/Not Resolved]
  - Off label use [Unknown]
